FAERS Safety Report 16726421 (Version 1)
Quarter: 2019Q3

REPORT INFORMATION
  Report Type: Report from Study
  Country: DE (occurrence: DE)
  Receive Date: 20190821
  Receipt Date: 20190821
  Transmission Date: 20191005
  Serious: Yes (Hospitalization)
  Sender: FDA-Public Use
  Company Number: DE-MYLANLABS-2019M1078178

PATIENT
  Age: 75 Year
  Sex: Female

DRUGS (10)
  1. LEPONEX [Interacting]
     Active Substance: CLOZAPINE
     Dosage: 50MG/DAY
     Route: 048
     Dates: start: 20040119, end: 20040120
  2. LEPONEX [Suspect]
     Active Substance: CLOZAPINE
     Indication: SCHIZOPHRENIA
     Dosage: 12.5MG/DAY
     Route: 048
     Dates: start: 20040112, end: 20040112
  3. LEPONEX [Interacting]
     Active Substance: CLOZAPINE
     Dosage: 75MG/DAY
     Route: 048
     Dates: start: 20040121, end: 20040121
  4. IMPROMEN /00568803/ [Interacting]
     Active Substance: BROMPERIDOL
     Indication: PSYCHOTIC DISORDER
     Dosage: 1MG/DAY
     Route: 048
     Dates: start: 20031211
  5. LEPONEX [Interacting]
     Active Substance: CLOZAPINE
     Dosage: 62.5MG/DAY
     Route: 048
     Dates: start: 20040122, end: 20040123
  6. LEPONEX [Interacting]
     Active Substance: CLOZAPINE
     Dosage: 25MG/DAY
     Route: 048
     Dates: start: 20040124
  7. BIFITERAL [Concomitant]
     Active Substance: LACTULOSE
     Indication: PRODUCT USED FOR UNKNOWN INDICATION
     Dosage: 20ML/DAY
     Dates: start: 20000101
  8. LEPONEX [Interacting]
     Active Substance: CLOZAPINE
     Indication: SCHIZOPHRENIFORM DISORDER
     Dosage: 25MG/DAY
     Route: 048
     Dates: start: 20040113, end: 20040113
  9. ACETYLSALICYLIC ACID [Concomitant]
     Active Substance: ASPIRIN
     Indication: PRODUCT USED FOR UNKNOWN INDICATION
     Dosage: 100MG/DAY
     Route: 048
     Dates: start: 20000101
  10. LEPONEX [Interacting]
     Active Substance: CLOZAPINE
     Dosage: 37.5MG/DAY
     Route: 048
     Dates: start: 20040114, end: 20040118

REACTIONS (4)
  - Muscle twitching [Recovered/Resolved]
  - Generalised tonic-clonic seizure [Recovered/Resolved]
  - Liver function test abnormal [Recovered/Resolved]
  - Drug interaction [Recovered/Resolved]

NARRATIVE: CASE EVENT DATE: 20040124
